FAERS Safety Report 22400328 (Version 1)
Quarter: 2023Q2

REPORT INFORMATION
  Report Type: Spontaneous
  Country: US (occurrence: None)
  Receive Date: 20230601
  Receipt Date: 20230601
  Transmission Date: 20230721
  Serious: No
  Sender: FDA-Public Use
  Company Number: None

PATIENT
  Sex: Female

DRUGS (20)
  1. EVEROLIMUS [Suspect]
     Active Substance: EVEROLIMUS
     Indication: Breast cancer female
     Dosage: FREQUENCY : DAILY;?
     Route: 048
     Dates: start: 202304
  2. ANASTROZOLE [Concomitant]
     Active Substance: ANASTROZOLE
  3. ATORVASTATIN [Concomitant]
     Active Substance: ATORVASTATIN
  4. ASPIRIN [Concomitant]
     Active Substance: ASPIRIN
  5. DICLOFENAC [Concomitant]
     Active Substance: DICLOFENAC
  6. COLACE [Concomitant]
     Active Substance: DOCUSATE SODIUM
  7. FLUOXETINE [Suspect]
     Active Substance: FLUOXETINE HYDROCHLORIDE
  8. GLIMEPIRIDE [Concomitant]
     Active Substance: GLIMEPIRIDE
  9. LACTULOSE [Concomitant]
     Active Substance: LACTULOSE
  10. LISINOPRIL [Concomitant]
     Active Substance: LISINOPRIL
  11. LOPERAMIDE [Concomitant]
     Active Substance: LOPERAMIDE
  12. NARCAN [Concomitant]
     Active Substance: NALOXONE HYDROCHLORIDE
  13. ZOFRAN [Concomitant]
     Active Substance: ONDANSETRON HYDROCHLORIDE
  14. GABAPENTIN [Concomitant]
     Active Substance: GABAPENTIN
  15. ALPRAZOLAM [Concomitant]
     Active Substance: ALPRAZOLAM
  16. LANTUS [Concomitant]
     Active Substance: INSULIN GLARGINE
  17. TRAMADOL [Concomitant]
     Active Substance: TRAMADOL
  18. ABEMACICLIB [Concomitant]
     Active Substance: ABEMACICLIB
  19. EXEMESTANE [Concomitant]
     Active Substance: EXEMESTANE
  20. FLAGYL [Concomitant]
     Active Substance: METRONIDAZOLE\METRONIDAZOLE HYDROCHLORIDE

REACTIONS (1)
  - Blood glucose increased [None]
